FAERS Safety Report 9930855 (Version 1)
Quarter: 2014Q1

REPORT INFORMATION
  Report Type: Spontaneous
  Country: US (occurrence: US)
  Receive Date: 20140227
  Receipt Date: 20140227
  Transmission Date: 20141002
  Serious: No
  Sender: FDA-Public Use
  Company Number: US-AMGEN-USASP2014003267

PATIENT
  Age: 58 Year
  Sex: Male
  Weight: 82.54 kg

DRUGS (5)
  1. ENBREL [Suspect]
     Indication: PRODUCT USED FOR UNKNOWN INDICATION
     Dosage: 50 MG, QWK
     Route: 058
  2. PREDNISONE [Concomitant]
     Dosage: 1 MG, UNK
  3. BUSPAR [Concomitant]
     Dosage: 10 MG, UNK
  4. CELEXA                             /00582602/ [Concomitant]
     Dosage: 10 MG, UNK
  5. FISH OIL [Concomitant]
     Dosage: UNK

REACTIONS (2)
  - Osteoarthritis [Unknown]
  - Psoriasis [Unknown]
